FAERS Safety Report 19508171 (Version 17)
Quarter: 2023Q1

REPORT INFORMATION
  Report Type: Spontaneous
  Country: JP (occurrence: JP)
  Receive Date: 20210708
  Receipt Date: 20230327
  Transmission Date: 20230417
  Serious: Yes (Hospitalization, Other)
  Sender: FDA-Public Use
  Company Number: JP-BRISTOL-MYERS SQUIBB COMPANY-BMS-2021-027873

PATIENT
  Age: 85 Year
  Sex: Female
  Weight: 48.9 kg

DRUGS (16)
  1. YERVOY [Suspect]
     Active Substance: IPILIMUMAB
     Indication: Thymic carcinoma
     Dosage: 1 MG/KG, Q6W
     Route: 041
     Dates: start: 20210303, end: 20210303
  2. YERVOY [Suspect]
     Active Substance: IPILIMUMAB
     Indication: Lung neoplasm malignant
  3. YERVOY [Suspect]
     Active Substance: IPILIMUMAB
     Indication: Malignant neoplasm of thymus
  4. OPDIVO [Suspect]
     Active Substance: NIVOLUMAB
     Indication: Lung neoplasm malignant
     Route: 041
     Dates: start: 20210303, end: 20210303
  5. OPDIVO [Suspect]
     Active Substance: NIVOLUMAB
     Indication: Thymic carcinoma
  6. OPDIVO [Suspect]
     Active Substance: NIVOLUMAB
     Indication: Malignant neoplasm of thymus
  7. PREDONINE [Suspect]
     Active Substance: PREDNISOLONE
     Indication: Pyrexia
     Dates: start: 20210312, end: 20210322
  8. PREDONINE [Suspect]
     Active Substance: PREDNISOLONE
     Dates: start: 20210323
  9. PREDONINE [Suspect]
     Active Substance: PREDNISOLONE
     Dosage: GRADUALLY DECREASE 5M?/EVERYWEEK
  10. PREDONINE [Suspect]
     Active Substance: PREDNISOLONE
     Dates: start: 20210618
  11. ACETAMINOPHEN [Concomitant]
     Active Substance: ACETAMINOPHEN
     Indication: Product used for unknown indication
     Route: 048
     Dates: start: 20210303
  12. AMPICILLIN SODIUM\SULBACTAM SODIUM [Concomitant]
     Active Substance: AMPICILLIN SODIUM\SULBACTAM SODIUM
     Indication: Product used for unknown indication
     Route: 041
     Dates: start: 20210308, end: 20210317
  13. SULFAMETHOXAZOLE\TRIMETHOPRIM [Concomitant]
     Active Substance: SULFAMETHOXAZOLE\TRIMETHOPRIM
     Indication: Product used for unknown indication
     Route: 048
     Dates: start: 20210312
  14. LANSOPRAZOLE [Concomitant]
     Active Substance: LANSOPRAZOLE
     Indication: Product used for unknown indication
     Route: 048
     Dates: start: 20210312
  15. EPRAZINONE [Concomitant]
     Active Substance: EPRAZINONE
     Indication: Product used for unknown indication
     Route: 048
     Dates: start: 20210306
  16. AMBROXOL [Concomitant]
     Active Substance: AMBROXOL
     Indication: Product used for unknown indication
     Dosage: 15
     Dates: start: 20210306

REACTIONS (7)
  - Tumour pseudoprogression [Recovered/Resolved]
  - Infusion related reaction [Recovered/Resolved]
  - Erythema [Recovered/Resolved]
  - Arthralgia [Recovered/Resolved]
  - Gastric ulcer [Recovered/Resolved]
  - Dyspnoea [Recovered/Resolved]
  - Off label use [Unknown]

NARRATIVE: CASE EVENT DATE: 20210303
